FAERS Safety Report 7006471-9 (Version None)
Quarter: 2010Q3

REPORT INFORMATION
  Report Type: 
  Country: None (occurrence: None)
  Receive Date: 20100910
  Receipt Date: 20081120
  Transmission Date: 20110219
  Serious: Yes (Other)
  Sender: FDA-Public Use
  Company Number: 2008SP023801

PATIENT
  Age: 15 Year
  Sex: Male

DRUGS (1)
  1. NOXAFIL [Suspect]
     Indication: ASPERGILLOSIS

REACTIONS (2)
  - GAMMA-GLUTAMYLTRANSFERASE INCREASED [None]
  - HEPATIC FIBROSIS [None]
